FAERS Safety Report 23356356 (Version 1)
Quarter: 2024Q1

REPORT INFORMATION
  Report Type: Spontaneous
  Country: FR (occurrence: FR)
  Receive Date: 20240102
  Receipt Date: 20240102
  Transmission Date: 20240410
  Serious: Yes (Hospitalization)
  Sender: FDA-Public Use
  Company Number: None

PATIENT
  Age: 62 Year
  Sex: Female
  Weight: 54 kg

DRUGS (4)
  1. OXALIPLATIN [Suspect]
     Active Substance: OXALIPLATIN
     Indication: Gastric cancer stage IV
     Dosage: DOSE AT 100%: 85 MG/M2
     Dates: start: 20231016, end: 20231016
  2. METHYLPREDNISOLONE [Suspect]
     Active Substance: METHYLPREDNISOLONE
     Indication: Gastric cancer stage IV
     Dosage: STRENGTH:  40 MG, (IM-IV)
     Dates: start: 20231030, end: 20231030
  3. OXALIPLATIN [Suspect]
     Active Substance: OXALIPLATIN
     Indication: Gastric cancer stage IV
     Dosage: DOSE AT 75%: 63.75 MG/M2
     Dates: start: 20231030, end: 20231030
  4. METHYLPREDNISOLONE [Suspect]
     Active Substance: METHYLPREDNISOLONE
     Indication: Gastric cancer stage IV
     Dosage: STRENGTH:  40 MG, (IM-IV)
     Dates: start: 20231016, end: 20231016

REACTIONS (2)
  - Infusion related reaction [Recovered/Resolved]
  - Back pain [Recovered/Resolved]

NARRATIVE: CASE EVENT DATE: 20231016
